FAERS Safety Report 6315800 (Version 3)
Quarter: 2017Q3

REPORT INFORMATION
  Report Type: Spontaneous
  Country: US (occurrence: US)
  Receive Date: 20061109
  Receipt Date: 20170928
  Transmission Date: 20171128
  Serious: Yes (Death, Hospitalization, Other)
  Sender: FDA-Public Use
  Company Number: US-PFIZER INC-2006134787

PATIENT
  Age: 74 Year
  Sex: Female

DRUGS (3)
  1. CELEBREX [Suspect]
     Active Substance: CELECOXIB
     Indication: PAIN
     Dosage: 200 MG, 2X/DAY
     Dates: start: 20020501
  2. VIOXX [Suspect]
     Active Substance: ROFECOXIB
     Dosage: UNK
     Dates: start: 20030902, end: 20031103
  3. BEXTRA [Suspect]
     Active Substance: VALDECOXIB
     Indication: PAIN
     Dosage: 20 MG, 1X/DAY
     Dates: start: 20020902, end: 20030730

REACTIONS (2)
  - Ischaemic stroke [Fatal]
  - Depression [Unknown]

NARRATIVE: CASE EVENT DATE: 20031102
